FAERS Safety Report 16881634 (Version 2)
Quarter: 2019Q4

REPORT INFORMATION
  Report Type: Report from Study
  Country: US (occurrence: US)
  Receive Date: 20191003
  Receipt Date: 20191119
  Transmission Date: 20200122
  Serious: Yes (Hospitalization)
  Sender: FDA-Public Use
  Company Number: US-ASTELLAS-2019US038772

PATIENT
  Sex: Male

DRUGS (1)
  1. ENZALUTAMIDE [Suspect]
     Active Substance: ENZALUTAMIDE
     Indication: PROSTATE CANCER
     Route: 048
     Dates: start: 20190808, end: 201910

REACTIONS (6)
  - Nausea [Unknown]
  - Vomiting [Unknown]
  - Dizziness [Unknown]
  - Anaemia [Unknown]
  - Bone pain [Unknown]
  - Constipation [Unknown]
